FAERS Safety Report 5865155-0 (Version None)
Quarter: 2008Q3

REPORT INFORMATION
  Report Type: 
  Country: None (occurrence: None)
  Receive Date: 20080829
  Receipt Date: 20080822
  Transmission Date: 20090109
  Serious: Yes (Hospitalization)
  Sender: FDA-Public Use
  Company Number: A0745063A

PATIENT
  Sex: Male
  Weight: 61.4 kg

DRUGS (1)
  1. AVANDIA [Suspect]
     Route: 048
     Dates: start: 20041206, end: 20070226

REACTIONS (3)
  - MYOCARDIAL INFARCTION [None]
  - TACHYCARDIA [None]
  - VENOUS OCCLUSION [None]
